FAERS Safety Report 4532505-7 (Version None)
Quarter: 2004Q4

REPORT INFORMATION
  Report Type: 
  Country: None (occurrence: None)
  Receive Date: 20041220
  Receipt Date: 20041111
  Transmission Date: 20050328
  Serious: Yes (Life-Threatening, Hospitalization, Disabling, Other)
  Sender: FDA-Public Use
  Company Number: US-MERCK-0411USA02212

PATIENT
  Age: 63 Year
  Sex: Male
  Weight: 127 kg

DRUGS (10)
  1. VIOXX [Suspect]
     Indication: ARTHRITIS
     Route: 048
     Dates: end: 20040930
  2. PRILOSEC [Concomitant]
     Route: 065
  3. AVALIDE [Concomitant]
     Route: 065
  4. PRAVACHOL [Concomitant]
     Route: 065
  5. QUININE SULFATE [Concomitant]
     Route: 065
  6. TOPROL-XL [Concomitant]
     Route: 065
  7. NORVASC [Concomitant]
     Route: 065
     Dates: start: 20031023
  8. MELATONIN [Concomitant]
     Route: 065
  9. GLUCOTROL XL [Concomitant]
     Route: 065
  10. ASPIRIN [Concomitant]
     Route: 065

REACTIONS (5)
  - AORTIC ANEURYSM [None]
  - AORTIC DISSECTION [None]
  - HEPATIC FUNCTION ABNORMAL [None]
  - RENAL CYST [None]
  - SPLENOMEGALY [None]
